FAERS Safety Report 18334072 (Version 1)
Quarter: 2020Q4

REPORT INFORMATION
  Report Type: Spontaneous
  Country: US (occurrence: US)
  Receive Date: 20201001
  Receipt Date: 20201001
  Transmission Date: 20210113
  Serious: Yes (Other)
  Sender: FDA-Public Use
  Company Number: US-CURIUM-200400240

PATIENT
  Age: 58 Year
  Sex: Female

DRUGS (2)
  1. MYOVIEW [Concomitant]
     Active Substance: TECHNETIUM TC-99M TETROFOSMIN
     Indication: CARDIAC STRESS TEST
     Route: 042
     Dates: start: 20041208, end: 20041208
  2. THALLOUS CHLORIDE TL 201 [Suspect]
     Active Substance: THALLOUS CHLORIDE TL-201
     Indication: SCAN MYOCARDIAL PERFUSION
     Route: 042
     Dates: start: 20041208, end: 20041208

REACTIONS (3)
  - Speech disorder [Recovered/Resolved]
  - Dysarthria [Recovered/Resolved]
  - Swollen tongue [Recovered/Resolved]

NARRATIVE: CASE EVENT DATE: 20041208
